FAERS Safety Report 11237280 (Version 1)
Quarter: 2015Q3

REPORT INFORMATION
  Report Type: Report from Study
  Country: US (occurrence: US)
  Receive Date: 20150703
  Receipt Date: 20150703
  Transmission Date: 20151125
  Serious: Yes (Other)
  Sender: FDA-Public Use
  Company Number: US-ASTRAZENECA-2015SE56771

PATIENT
  Age: 26308 Day
  Sex: Female
  Weight: 67.6 kg

DRUGS (4)
  1. MOVANTIK [Suspect]
     Active Substance: NALOXEGOL OXALATE
     Indication: ABDOMINAL DISCOMFORT
     Dosage: HALF OF THE PILL
     Route: 048
     Dates: start: 20150530
  2. MOVANTIK [Suspect]
     Active Substance: NALOXEGOL OXALATE
     Indication: ABDOMINAL DISCOMFORT
     Route: 048
     Dates: start: 20150528
  3. MOVANTIK [Suspect]
     Active Substance: NALOXEGOL OXALATE
     Indication: CONSTIPATION
     Route: 048
     Dates: start: 20150528
  4. MOVANTIK [Suspect]
     Active Substance: NALOXEGOL OXALATE
     Indication: CONSTIPATION
     Dosage: HALF OF THE PILL
     Route: 048
     Dates: start: 20150530

REACTIONS (8)
  - Feeling abnormal [Unknown]
  - Upper limb fracture [Not Recovered/Not Resolved]
  - Weight decreased [Unknown]
  - Abdominal discomfort [Unknown]
  - Intentional product misuse [Unknown]
  - Somnolence [Unknown]
  - Fatigue [Unknown]
  - Eating disorder [Unknown]

NARRATIVE: CASE EVENT DATE: 20150625
